FAERS Safety Report 7119705-7 (Version None)
Quarter: 2010Q4

REPORT INFORMATION
  Report Type: 
  Country: None (occurrence: None)
  Receive Date: 20101123
  Receipt Date: 20101116
  Transmission Date: 20110411
  Serious: Yes (Other)
  Sender: FDA-Public Use
  Company Number: US-JNJCH-2010026535

PATIENT
  Age: 65 Year
  Sex: Female

DRUGS (2)
  1. PRECISE EXTRA STRENGTH PAIN RELIEVING CREAM [Suspect]
     Indication: ARTHRALGIA
     Dosage: TEXT:AMOUNT OF A ^PENCIL ERASER^ ONCE
     Route: 061
     Dates: start: 20101110, end: 20101110
  2. TYLENOL (CAPLET) [Concomitant]
     Indication: PAIN
     Dosage: TEXT:UNKNOWN
     Route: 065

REACTIONS (4)
  - APPLICATION SITE ERYTHEMA [None]
  - APPLICATION SITE PAIN [None]
  - APPLICATION SITE PRURITUS [None]
  - APPLICATION SITE VESICLES [None]
